FAERS Safety Report 8720094 (Version 3)
Quarter: 2012Q4

REPORT INFORMATION
  Report Type: 
  Country: BR (occurrence: BR)
  Receive Date: 20120813
  Receipt Date: 20120926
  Transmission Date: 20130627
  Serious: Yes (Other)
  Sender: FDA-Public Use
  Company Number: BR-INCYTE CORPORATION-2012IN001447

PATIENT
  Age: 63 Year
  Sex: Female
  Weight: 78.2 kg

DRUGS (8)
  1. INC424 [Suspect]
     Indication: MYELOFIBROSIS
     Dosage: 15 mg, bid
     Route: 048
     Dates: start: 20111219
  2. INC424 [Suspect]
     Dosage: UNK
     Dates: end: 20120801
  3. ALLOPURINOL [Concomitant]
  4. PREDNISONE [Concomitant]
  5. LEXAPRO [Concomitant]
  6. ACETYLSALICYLIC ACID [Concomitant]
  7. SELOZOK [Concomitant]
  8. SANDRENA [Concomitant]

REACTIONS (2)
  - Neuropathy peripheral [Not Recovered/Not Resolved]
  - Pneumonia cryptococcal [None]
